FAERS Safety Report 15133297 (Version 1)
Quarter: 2018Q3

REPORT INFORMATION
  Report Type: Spontaneous
  Country: TR (occurrence: TR)
  Receive Date: 20180712
  Receipt Date: 20180712
  Transmission Date: 20181010
  Serious: Yes (Hospitalization, Other)
  Sender: FDA-Public Use
  Company Number: TR-BIOVITRUM-2018TR0803

PATIENT
  Age: 19 Year
  Sex: Male

DRUGS (4)
  1. TACROLIMUS. [Concomitant]
     Active Substance: TACROLIMUS
     Indication: IMMUNOSUPPRESSION
  2. PREDNISOLONE. [Concomitant]
     Active Substance: PREDNISOLONE
     Indication: IMMUNOSUPPRESSION
  3. KINERET [Suspect]
     Active Substance: ANAKINRA
     Indication: FAMILIAL MEDITERRANEAN FEVER
  4. MYCOPHENOLATE SODIUM [Concomitant]
     Active Substance: MYCOPHENOLATE SODIUM
     Indication: IMMUNOSUPPRESSION

REACTIONS (3)
  - Kidney transplant rejection [Unknown]
  - Otitis media [Unknown]
  - Drug ineffective for unapproved indication [Unknown]
